FAERS Safety Report 6010955-X (Version None)
Quarter: 2008Q4

REPORT INFORMATION
  Report Type: 
  Country: None (occurrence: None)
  Receive Date: 20081218
  Receipt Date: 20081217
  Transmission Date: 20090506
  Serious: Yes (Other)
  Sender: FDA-Public Use
  Company Number: A0760746A

PATIENT
  Age: 80 Year
  Sex: Female

DRUGS (11)
  1. ADVAIR DISKUS 500/50 [Suspect]
     Indication: CHRONIC OBSTRUCTIVE PULMONARY DISEASE
     Route: 055
     Dates: start: 20061201
  2. ATROVENT [Concomitant]
  3. METFORMIN HCL [Concomitant]
  4. VERAPAMIL [Concomitant]
  5. GLIPIZIDE [Concomitant]
  6. FAMOTIDINE [Concomitant]
  7. LISINOPRIL [Concomitant]
  8. PREDNISONE TAB [Concomitant]
  9. VITAMIN D [Concomitant]
  10. ASCORBIC ACID [Concomitant]
  11. LIPITOR [Concomitant]

REACTIONS (2)
  - CHOKING [None]
  - INCREASED UPPER AIRWAY SECRETION [None]
